FAERS Safety Report 18443022 (Version 1)
Quarter: 2020Q4

REPORT INFORMATION
  Report Type: Spontaneous
  Country: US (occurrence: US)
  Receive Date: 20201030
  Receipt Date: 20201030
  Transmission Date: 20210114
  Serious: Yes (Other)
  Sender: FDA-Public Use
  Company Number: US-AMARIN PHARMA, INC.-2020AMR000747

PATIENT
  Age: 65 Year
  Sex: Male
  Weight: 149.82 kg

DRUGS (1)
  1. VASCEPA [Suspect]
     Active Substance: ICOSAPENT ETHYL
     Indication: BLOOD TRIGLYCERIDES INCREASED
     Route: 048
     Dates: start: 202001

REACTIONS (4)
  - Product odour abnormal [Unknown]
  - Therapy interrupted [Unknown]
  - Stent placement [Recovered/Resolved]
  - Nausea [Unknown]
